FAERS Safety Report 7636865-X (Version None)
Quarter: 2011Q3

REPORT INFORMATION
  Report Type: 
  Country: None (occurrence: None)
  Receive Date: 20110726
  Receipt Date: 20110715
  Transmission Date: 20111222
  Serious: Yes (Hospitalization)
  Sender: FDA-Public Use
  Company Number: FR-JNJFOC-20100305110

PATIENT
  Age: 49 Year
  Sex: Female
  Weight: 85 kg

DRUGS (15)
  1. METHOTREXATE [Concomitant]
     Indication: RHEUMATOID ARTHRITIS
     Route: 048
     Dates: start: 20081101
  2. ZYRTEC [Concomitant]
     Indication: PREMEDICATION
  3. REMICADE [Suspect]
     Route: 042
     Dates: start: 20090902
  4. REMICADE [Suspect]
     Route: 042
     Dates: start: 20100106
  5. REMICADE [Suspect]
     Dosage: 11TH INFUSION
     Route: 042
     Dates: start: 20100217
  6. REMICADE [Suspect]
     Route: 042
     Dates: start: 20090107
  7. REMICADE [Suspect]
     Indication: RHEUMATOID ARTHRITIS
     Route: 042
     Dates: start: 20091014
  8. REMICADE [Suspect]
     Route: 042
     Dates: start: 20091201
  9. REMICADE [Suspect]
     Route: 042
     Dates: start: 20090121
  10. REMICADE [Suspect]
     Route: 042
     Dates: start: 20090603
  11. ACETAMINOPHEN [Concomitant]
     Indication: ARTHRALGIA
     Route: 048
  12. REMICADE [Suspect]
     Route: 042
     Dates: start: 20090722
  13. REMICADE [Suspect]
     Route: 042
     Dates: start: 20090218
  14. REMICADE [Suspect]
     Route: 042
     Dates: start: 20090415
  15. FOLIC ACID [Concomitant]
     Indication: RHEUMATOID ARTHRITIS
     Route: 048
     Dates: start: 20090101

REACTIONS (7)
  - FLUSHING [None]
  - HOT FLUSH [None]
  - ERYTHEMA [None]
  - MYOCLONUS [None]
  - HAEMANGIOMA [None]
  - INFUSION RELATED REACTION [None]
  - HEADACHE [None]
